FAERS Safety Report 9587285 (Version 6)
Quarter: 2014Q2

REPORT INFORMATION
  Report Type: Spontaneous
  Country: SE (occurrence: SE)
  Receive Date: 20131003
  Receipt Date: 20140606
  Transmission Date: 20141212
  Serious: Yes (Hospitalization, Other)
  Sender: FDA-Public Use
  Company Number: SE-ABBVIE-13X-150-1142827-00

PATIENT
  Age: 44 Year
  Sex: Female

DRUGS (6)
  1. NEXIUM HP [Suspect]
     Indication: GASTRITIS
     Route: 048
     Dates: start: 20130513, end: 20130519
  2. NEXIUM [Suspect]
     Indication: GASTRITIS
     Route: 048
     Dates: start: 20130513, end: 20130519
  3. AMIMOX [Suspect]
     Indication: GASTRITIS
     Route: 048
     Dates: start: 20130513, end: 20130519
  4. SAROTEN [Concomitant]
     Indication: GASTRITIS
     Dates: start: 20130517
  5. SAROTEN [Concomitant]
  6. CERAZETTE [Concomitant]
     Indication: GASTRITIS

REACTIONS (12)
  - Kawasaki^s disease [Unknown]
  - Feeling hot [Unknown]
  - Erythema multiforme [Not Recovered/Not Resolved]
  - Pruritus [Recovering/Resolving]
  - Eosinophilia [Not Recovered/Not Resolved]
  - Skin hyperpigmentation [Unknown]
  - Skin warm [Unknown]
  - Hypoaesthesia oral [Recovered/Resolved with Sequelae]
  - Areflexia [Recovered/Resolved with Sequelae]
  - Skin burning sensation [Recovered/Resolved with Sequelae]
  - Erythema [Recovered/Resolved with Sequelae]
  - Toxic skin eruption [Unknown]
